FAERS Safety Report 8630326 (Version 11)
Quarter: 2017Q4

REPORT INFORMATION
  Report Type: Report from Study
  Country: DE (occurrence: DE)
  Receive Date: 20120622
  Receipt Date: 20171122
  Transmission Date: 20180321
  Serious: Yes (Death, Hospitalization)
  Sender: FDA-Public Use
  Company Number: DE-ROCHE-1077874

PATIENT
  Age: 72 Year
  Sex: Female
  Weight: 53 kg

DRUGS (25)
  1. XELODA [Suspect]
     Active Substance: CAPECITABINE
     Indication: ADENOCARCINOMA GASTRIC
     Route: 065
     Dates: start: 20111114, end: 20121213
  2. DOCETAXEL. [Suspect]
     Active Substance: DOCETAXEL
     Route: 042
     Dates: start: 20120724, end: 20120926
  3. FLUOROURACIL. [Suspect]
     Active Substance: FLUOROURACIL
     Route: 042
     Dates: start: 20120724, end: 20121010
  4. NEUROTRAT FORTE [Concomitant]
     Route: 065
  5. KREON [Concomitant]
     Active Substance: PANCRELIPASE
     Route: 065
  6. FOSFOMYCIN [Concomitant]
     Active Substance: FOSFOMYCIN
     Route: 065
  7. LOPERAMIDE [Concomitant]
     Active Substance: LOPERAMIDE
     Route: 065
  8. TRASTUZUMAB. [Suspect]
     Active Substance: TRASTUZUMAB
     Route: 042
     Dates: start: 20121010
  9. DOCETAXEL. [Suspect]
     Active Substance: DOCETAXEL
     Indication: ADENOCARCINOMA GASTRIC
     Dosage: LAST DOSE PRIOR TO SAE: 24/MAY/2012
     Route: 042
     Dates: start: 20120524, end: 20120710
  10. FLUOROURACIL. [Suspect]
     Active Substance: FLUOROURACIL
     Indication: ADENOCARCINOMA GASTRIC
     Dosage: LAST DOSE PRIOR TO SAE: 25/MAY/2012
     Route: 042
     Dates: start: 20120524, end: 20120710
  11. NOVALGIN [Concomitant]
     Active Substance: METAMIZOLE SODIUM
     Route: 048
     Dates: start: 20120604, end: 20120605
  12. LEUCOVORIN. [Concomitant]
     Active Substance: LEUCOVORIN
     Route: 065
     Dates: start: 20120524
  13. OXALIPLATIN. [Suspect]
     Active Substance: OXALIPLATIN
     Indication: ADENOCARCINOMA GASTRIC
     Dosage: LAST DOSE PRIOR TO SAE: 24/MAY/2012
     Route: 042
     Dates: start: 20120524, end: 20120710
  14. VITAMIN B12 [Concomitant]
     Active Substance: CYANOCOBALAMIN
     Route: 058
  15. LEUCOVORIN. [Concomitant]
     Active Substance: LEUCOVORIN
     Route: 065
     Dates: start: 20121010
  16. TRASTUZUMAB. [Suspect]
     Active Substance: TRASTUZUMAB
     Indication: ADENOCARCINOMA GASTRIC
     Dosage: LAST DOSE PRIOR TO SAE: 24/MAY/2012
     Route: 042
     Dates: start: 20120524, end: 20120710
  17. ENALAPRIL [Concomitant]
     Active Substance: ENALAPRIL
     Route: 065
  18. LEUCOVORIN. [Concomitant]
     Active Substance: LEUCOVORIN
     Route: 065
     Dates: start: 20120724, end: 20120926
  19. OXALIPLATIN. [Suspect]
     Active Substance: OXALIPLATIN
     Route: 042
     Dates: start: 20120724, end: 20121010
  20. LEVOTHYROXINE. [Concomitant]
     Active Substance: LEVOTHYROXINE
     Route: 065
  21. NEBIVOLOL. [Concomitant]
     Active Substance: NEBIVOLOL
     Route: 065
  22. MCP [Concomitant]
     Active Substance: METOCLOPRAMIDE HYDROCHLORIDE
     Dosage: DROPS
     Route: 048
  23. GRANISETRON [Concomitant]
     Active Substance: GRANISETRON
     Route: 065
  24. SIMVASTATIN. [Concomitant]
     Active Substance: SIMVASTATIN
     Route: 065
  25. TRASTUZUMAB. [Suspect]
     Active Substance: TRASTUZUMAB
     Route: 042
     Dates: start: 20120724, end: 20120926

REACTIONS (22)
  - General physical health deterioration [Recovered/Resolved]
  - Gait disturbance [Recovered/Resolved]
  - Anaemia [Recovered/Resolved]
  - Dehydration [Recovered/Resolved]
  - Urinary tract infection [Recovered/Resolved]
  - Weight decreased [Recovered/Resolved with Sequelae]
  - Pyrexia [Recovered/Resolved]
  - Cachexia [Unknown]
  - Dehydration [Recovered/Resolved]
  - Device occlusion [Recovered/Resolved]
  - General physical health deterioration [Fatal]
  - Atrioventricular block [Recovered/Resolved]
  - Asthenia [Recovered/Resolved]
  - Dizziness [Recovered/Resolved]
  - Acute kidney injury [Recovered/Resolved]
  - Pulmonary oedema [Recovered/Resolved with Sequelae]
  - Pneumonia [Fatal]
  - Leukopenia [Recovered/Resolved]
  - Urosepsis [Recovered/Resolved]
  - Syncope [Recovered/Resolved]
  - Hypokalaemia [Recovered/Resolved]
  - Dyspnoea [Fatal]

NARRATIVE: CASE EVENT DATE: 20120604
